FAERS Safety Report 23212460 (Version 1)
Quarter: 2023Q4

REPORT INFORMATION
  Report Type: Report from Study
  Country: US (occurrence: US)
  Receive Date: 20231121
  Receipt Date: 20231121
  Transmission Date: 20240110
  Serious: Yes (Other)
  Sender: FDA-Public Use
  Company Number: US-ABBVIE-5412345

PATIENT
  Sex: Male

DRUGS (1)
  1. IMBRUVICA [Suspect]
     Active Substance: IBRUTINIB
     Indication: Chronic lymphocytic leukaemia
     Route: 048
     Dates: start: 20220107

REACTIONS (4)
  - Chronic obstructive pulmonary disease [Unknown]
  - Pulmonary mass [Not Recovered/Not Resolved]
  - Renal cyst [Unknown]
  - Thoracotomy [Recovered/Resolved]

NARRATIVE: CASE EVENT DATE: 20230101
